FAERS Safety Report 7866633-5 (Version None)
Quarter: 2011Q4

REPORT INFORMATION
  Report Type: 
  Country: None (occurrence: None)
  Receive Date: 20111028
  Receipt Date: 20110718
  Transmission Date: 20120403
  Serious: No
  Sender: FDA-Public Use
  Company Number: US-GLAXOSMITHKLINE-A0937075A

PATIENT
  Age: 64 Year
  Sex: Male

DRUGS (10)
  1. CALCIUM CARBONATE [Concomitant]
  2. ATROVENT [Concomitant]
  3. VITAMIN D [Concomitant]
  4. PROBIOTICS [Concomitant]
  5. ATIVAN [Concomitant]
  6. ADVAIR DISKUS 100/50 [Suspect]
     Indication: PRODUCT USED FOR UNKNOWN INDICATION
     Dosage: 1PUFF TWICE PER DAY
     Route: 055
     Dates: start: 20090101
  7. NASACORT AQ [Suspect]
     Indication: MULTIPLE ALLERGIES
     Dosage: 2SPR PER DAY
     Route: 045
     Dates: start: 20090101
  8. AVAPRO [Concomitant]
  9. ASCORBIC ACID [Concomitant]
  10. MULTI-VITAMIN [Concomitant]

REACTIONS (5)
  - TOOTH LOSS [None]
  - TOOTHACHE [None]
  - GINGIVAL RECESSION [None]
  - GINGIVAL INFECTION [None]
  - DENTAL CARIES [None]
